FAERS Safety Report 14989575 (Version 1)
Quarter: 2018Q2

REPORT INFORMATION
  Report Type: Spontaneous
  Country: US (occurrence: US)
  Receive Date: 20180520
  Receipt Date: 20180520
  Transmission Date: 20180711
  Serious: Yes (Other)
  Sender: FDA-Public Use
  Company Number: None

PATIENT
  Age: 54 Year
  Sex: Male
  Weight: 90 kg

DRUGS (1)
  1. METHYLPHENIDATE ER 54 TL 709 [Suspect]
     Active Substance: METHYLPHENIDATE HYDROCHLORIDE
     Indication: ATTENTION DEFICIT/HYPERACTIVITY DISORDER
     Dosage: ?          QUANTITY:1 TABLET(S);?
     Route: 048
     Dates: start: 20180415, end: 20180415

REACTIONS (5)
  - Hyperhidrosis [None]
  - Loss of consciousness [None]
  - Hyperacusis [None]
  - Flushing [None]
  - Agitation [None]

NARRATIVE: CASE EVENT DATE: 20180415
